FAERS Safety Report 6833786-7 (Version None)
Quarter: 2010Q3

REPORT INFORMATION
  Report Type: 
  Country: None (occurrence: None)
  Receive Date: 20100712
  Receipt Date: 20070402
  Transmission Date: 20110219
  Serious: No
  Sender: FDA-Public Use
  Company Number: US-PFIZER INC-2007027586

PATIENT
  Sex: Female
  Weight: 86.18 kg

DRUGS (6)
  1. CHANTIX [Suspect]
     Indication: SMOKING CESSATION THERAPY
     Route: 048
     Dates: start: 20070324
  2. NICOTINE [Suspect]
     Indication: SMOKING CESSATION THERAPY
     Dates: start: 20070301
  3. NICOTINE [Suspect]
     Indication: RELAXATION THERAPY
  4. TYLENOL (CAPLET) [Concomitant]
     Indication: NECK PAIN
     Route: 048
  5. IBUPROFEN [Concomitant]
     Indication: NECK PAIN
     Route: 048
  6. LEXAPRO [Concomitant]
     Route: 048

REACTIONS (3)
  - DRUG DOSE OMISSION [None]
  - DYSGEUSIA [None]
  - NAUSEA [None]
